FAERS Safety Report 5139336-8 (Version None)
Quarter: 2006Q4

REPORT INFORMATION
  Report Type: 
  Country: None (occurrence: None)
  Receive Date: 20061030
  Receipt Date: 20060822
  Transmission Date: 20070319
  Serious: Yes (Death)
  Sender: FDA-Public Use
  Company Number: US-ROCHE-460640

PATIENT
  Age: 53 Year
  Sex: Male
  Weight: 123.4 kg

DRUGS (1)
  1. XELODA [Suspect]
     Indication: CHEMOTHERAPY
     Route: 048
     Dates: start: 20060420

REACTIONS (2)
  - HEPATIC NEOPLASM MALIGNANT [None]
  - HEPATITIS C [None]
